FAERS Safety Report 25165919 (Version 1)
Quarter: 2025Q2

REPORT INFORMATION
  Report Type: Spontaneous
  Country: US (occurrence: US)
  Receive Date: 20250407
  Receipt Date: 20250407
  Transmission Date: 20250717
  Serious: Yes (Hospitalization)
  Sender: NOVITIUM PHARMA
  Company Number: US-NOVITIUMPHARMA-2025USNVP00838

PATIENT
  Age: 78 Year
  Sex: Female

DRUGS (3)
  1. LIDOCAINE HYDROCHLORIDE [Suspect]
     Active Substance: LIDOCAINE HYDROCHLORIDE
     Indication: Microneedling
     Route: 061
  2. PHENYLEPHRINE [Concomitant]
     Active Substance: PHENYLEPHRINE
  3. TETRACAINE [Concomitant]
     Active Substance: TETRACAINE

REACTIONS (2)
  - Stress cardiomyopathy [Recovering/Resolving]
  - Overdose [Unknown]
